FAERS Safety Report 4870627-1 (Version None)
Quarter: 2005Q4

REPORT INFORMATION
  Report Type: 
  Country: None (occurrence: None)
  Receive Date: 20051228
  Receipt Date: 20051215
  Transmission Date: 20060501
  Serious: Yes (Other)
  Sender: FDA-Public Use
  Company Number: US200512002960

PATIENT
  Age: 77 Year
  Sex: Female

DRUGS (5)
  1. FORTEO [Suspect]
     Indication: OSTEOPOROSIS
     Dates: start: 20050301
  2. FORTEO PEN (250MCG/ML) (FORTEO PEN 250MCG/ML (3ML)) PEN DISPOSABLE [Concomitant]
  3. CARBIDOPA W/LEVODOPA (CARBIDOPA, LEVODOPA), 25/100 MG [Concomitant]
  4. AZOPT [Concomitant]
  5. XALATAN /SWE/(LATANOPROST) [Concomitant]

REACTIONS (2)
  - PARKINSON'S DISEASE [None]
  - PHARMACEUTICAL PRODUCT COMPLAINT [None]
